FAERS Safety Report 9392701 (Version 1)
Quarter: 2013Q3

REPORT INFORMATION
  Report Type: Spontaneous
  Country: BR (occurrence: BR)
  Receive Date: 20130710
  Receipt Date: 20130710
  Transmission Date: 20140515
  Serious: Yes (Hospitalization)
  Sender: FDA-Public Use
  Company Number: BR-ASTRAZENECA-2013SE50610

PATIENT
  Age: 567 Month
  Sex: Male
  Weight: 65 kg

DRUGS (3)
  1. CRESTOR [Suspect]
     Indication: BLOOD CHOLESTEROL INCREASED
     Route: 048
     Dates: start: 201301
  2. BRILINTA [Suspect]
     Route: 048
     Dates: start: 201305
  3. ASA [Concomitant]
     Dates: start: 201304

REACTIONS (2)
  - Coronary artery occlusion [Recovered/Resolved]
  - Drug effect incomplete [Not Recovered/Not Resolved]
